FAERS Safety Report 9639993 (Version 1)
Quarter: 2013Q4

REPORT INFORMATION
  Report Type: Spontaneous
  Country: JP (occurrence: JP)
  Receive Date: 20131023
  Receipt Date: 20131023
  Transmission Date: 20140711
  Serious: Yes (Other)
  Sender: FDA-Public Use
  Company Number: PHHY2013JP117262

PATIENT
  Age: 80 Year
  Sex: Female

DRUGS (1)
  1. NEORAL [Suspect]
     Indication: APLASTIC ANAEMIA
     Dosage: 150 MG, DAILY
     Route: 048

REACTIONS (2)
  - Renal disorder [Unknown]
  - Hyperkalaemia [Unknown]
